FAERS Safety Report 9410271 (Version 3)
Quarter: 2013Q3

REPORT INFORMATION
  Report Type: Spontaneous
  Country: US (occurrence: US)
  Receive Date: 20130719
  Receipt Date: 20130828
  Transmission Date: 20140515
  Serious: Yes (Death, Other)
  Sender: FDA-Public Use
  Company Number: US-PFIZER INC-2013207724

PATIENT
  Sex: Male

DRUGS (1)
  1. SOMAVERT [Suspect]
     Dosage: UNK

REACTIONS (1)
  - Cardiac failure [Fatal]
